FAERS Safety Report 20137132 (Version 10)
Quarter: 2023Q1

REPORT INFORMATION
  Report Type: Report from Study
  Country: JP (occurrence: None)
  Receive Date: 20211201
  Receipt Date: 20230327
  Transmission Date: 20230418
  Serious: Yes (Hospitalization)
  Sender: FDA-Public Use
  Company Number: 2021A846200

PATIENT
  Age: 66 Year
  Sex: Male

DRUGS (89)
  1. DURVALUMAB [Suspect]
     Active Substance: DURVALUMAB
     Indication: Oesophageal squamous cell carcinoma
     Route: 042
     Dates: start: 20211006, end: 20211006
  2. DURVALUMAB [Suspect]
     Active Substance: DURVALUMAB
     Indication: Oesophageal squamous cell carcinoma
     Route: 042
     Dates: start: 20211105, end: 20211105
  3. CISPLATIN [Suspect]
     Active Substance: CISPLATIN
     Indication: Oesophageal squamous cell carcinoma
     Dates: start: 20211006, end: 20211006
  4. CISPLATIN [Suspect]
     Active Substance: CISPLATIN
     Indication: Oesophageal squamous cell carcinoma
     Dates: start: 20211109, end: 20211109
  5. FLUOROURACIL [Suspect]
     Active Substance: FLUOROURACIL
     Indication: Oesophageal squamous cell carcinoma
     Dates: start: 20211006, end: 20211010
  6. FLUOROURACIL [Suspect]
     Active Substance: FLUOROURACIL
     Indication: Oesophageal squamous cell carcinoma
     Dates: start: 20211109, end: 20211113
  7. TIMOLOL/TRAVOPROST [Concomitant]
     Indication: Glaucoma
     Route: 047
     Dates: start: 20201023
  8. ROSUVASTATIN TABLETS 5MG^TOWA^ [Concomitant]
     Indication: Dyslipidaemia
     Route: 048
     Dates: start: 20200820
  9. ILUAMIX COMBINATION TABLETS LD^TOWA^ [Concomitant]
     Indication: Hypertension
     Route: 048
     Dates: start: 20201002
  10. AMLODIPINE/ALISKIREN [Concomitant]
     Indication: Hypertension
     Route: 048
     Dates: start: 20201002
  11. LANSOPRAZOLE [Concomitant]
     Active Substance: LANSOPRAZOLE
     Indication: Prophylaxis against gastrointestinal ulcer
     Route: 048
     Dates: start: 20210929
  12. SODIUM CHLORIDE [Concomitant]
     Active Substance: SODIUM CHLORIDE
     Indication: Nutritional supplementation
     Dosage: 1.0G AS REQUIRED
     Route: 048
     Dates: start: 20210930
  13. RACOL-NF LIQUID FOR ENTERAL USE [Concomitant]
     Indication: Nutritional supplementation
     Dosage: 400.0ML AS REQUIRED
     Route: 048
     Dates: start: 20210930
  14. ACETYLDIGOXIN/POTASSIUM ASPARTATE/MAGNESIUM [Concomitant]
     Indication: Premedication
     Dosage: 10.0 ML AT THE TIME OF ADMINISTRATION OF ANTICANCER DRUG
     Route: 042
     Dates: start: 20211006, end: 20211109
  15. MAGNESIUM SULFATE/ALOE FEROX [Concomitant]
     Indication: Premedication
     Dosage: 8.0 ML AT THE TIME OF ADMINISTRATION OF ANTICANCER DRUG
     Route: 042
     Dates: start: 20211006, end: 20211109
  16. FOSAPREPITANT [Concomitant]
     Active Substance: FOSAPREPITANT
     Indication: Premedication
     Dosage: 150.0 MG AT THE TIME OF ADMINISTRATION OF ANTICANCER DRUG
     Route: 042
     Dates: start: 20211006, end: 20211109
  17. PALONOSETRON HYDROCHLORIDE [Concomitant]
     Active Substance: PALONOSETRON HYDROCHLORIDE
     Indication: Premedication
     Dosage: 50.0 ML AT THE TIME OF ADMINISTRATION OF ANTICANCER DRUG
     Route: 042
     Dates: start: 20211006, end: 20211109
  18. ATROPINE SULFATE/DEXAMETHASONE SODIUM PHOSPHATE [Concomitant]
     Indication: Premedication
     Dosage: 9.9 MG AT THE TIME OF ADMINISTRATION OF ANTICANCER DRUG
     Route: 042
     Dates: start: 20211006, end: 20211112
  19. ATROPINE SULFATE/DEXAMETHASONE SODIUM PHOSPHATE [Concomitant]
     Indication: Premedication
     Dosage: 6.6 MG DAYS 2-4 OF FLUOROURACIL ADMINISTRATION
     Route: 042
     Dates: start: 20211007, end: 20211112
  20. FUROSEMIDE [Concomitant]
     Active Substance: FUROSEMIDE
     Indication: Premedication
     Dosage: 20.0 MG AT THE TIME OF ADMINISTRATION OF ANTICANCER DRUG
     Route: 042
     Dates: start: 20211006, end: 20211109
  21. FUROSEMIDE [Concomitant]
     Active Substance: FUROSEMIDE
     Indication: Atrial fibrillation
     Dosage: 20.0 MG AT THE TIME OF ADMINISTRATION OF ANTICANCER DRUG
     Route: 042
     Dates: start: 20211006, end: 20211109
  22. CALONAL [Concomitant]
     Active Substance: ACETAMINOPHEN
     Indication: Oesophagitis
     Route: 048
     Dates: start: 20211020
  23. CALONAL [Concomitant]
     Active Substance: ACETAMINOPHEN
     Indication: Febrile neutropenia
     Route: 048
     Dates: start: 20211020
  24. MORPHINE SULFATE [Concomitant]
     Active Substance: MORPHINE SULFATE
     Indication: Oesophagitis
     Dosage: 40.0 MG EVERY 12 HOUR
     Route: 048
     Dates: start: 20211013
  25. SYMPROIC TABLETS [Concomitant]
     Indication: Constipation
     Route: 048
     Dates: start: 20211013
  26. MORPHINE HYDROCHLORIDE [Concomitant]
     Active Substance: MORPHINE HYDROCHLORIDE
     Indication: Oesophagitis
     Dosage: 5.0MG AS REQUIRED
     Route: 048
     Dates: start: 20211013
  27. SUNRYTHM CAPSULES [Concomitant]
     Indication: Atrial fibrillation
     Route: 048
     Dates: start: 20211011
  28. VASOLAN [Concomitant]
     Indication: Atrial fibrillation
     Route: 048
     Dates: start: 20211011
  29. PETROLATUM [Concomitant]
     Active Substance: PETROLATUM
     Indication: Gastrostomy
     Dosage: 1.0 FTU AS REQUIRED
     Route: 061
     Dates: start: 20211011
  30. BETAMETHASONE BUTYRATE PROPIONATE [Concomitant]
     Active Substance: BETAMETHASONE BUTYRATE PROPIONATE
     Indication: Rash
     Dosage: 1.0 FTU TWO TIMES A DAY
     Route: 061
     Dates: start: 20211105, end: 20211108
  31. TARLIGE TABLETS [Concomitant]
     Indication: Oesophagitis
     Route: 048
     Dates: start: 20211109
  32. GLACTIVE TABLETS [Concomitant]
     Indication: Diabetes mellitus
     Route: 048
     Dates: start: 20211113, end: 20211121
  33. FILGRASTIM BS INJECTION SYRINGE F [Concomitant]
     Indication: Neutropenia
     Route: 042
     Dates: start: 20211121, end: 20211126
  34. HYDROXYZINE HYDROCHLORIDE [Concomitant]
     Active Substance: HYDROXYZINE HYDROCHLORIDE
     Indication: Insomnia
     Route: 042
     Dates: start: 20211121, end: 20211121
  35. SOLULACT D [Concomitant]
     Indication: Enteral nutrition
     Dates: start: 20210928, end: 20211001
  36. SOLULACT D [Concomitant]
     Indication: Febrile neutropenia
     Dates: start: 20210928, end: 20211001
  37. SOLULACT D [Concomitant]
     Indication: Prophylaxis
     Dates: start: 20210928, end: 20211001
  38. SOLULACT D [Concomitant]
     Indication: Enteral nutrition
     Dates: start: 20220203, end: 20220210
  39. SOLULACT D [Concomitant]
     Indication: Febrile neutropenia
     Dates: start: 20220203, end: 20220210
  40. SOLULACT D [Concomitant]
     Indication: Prophylaxis
     Dates: start: 20220203, end: 20220210
  41. SOLULACT D [Concomitant]
     Indication: Enteral nutrition
     Dates: start: 20220211, end: 20220214
  42. SOLULACT D [Concomitant]
     Indication: Febrile neutropenia
     Dates: start: 20220211, end: 20220214
  43. SOLULACT D [Concomitant]
     Indication: Prophylaxis
     Dates: start: 20220211, end: 20220214
  44. CARBAZOCHROME SODIUM SULFONATE [Concomitant]
     Active Substance: CARBAZOCHROME SODIUM SULFONATE
     Indication: Enteral nutrition
     Dates: start: 20210928, end: 20211001
  45. TRANEXAMIC ACID [Concomitant]
     Active Substance: TRANEXAMIC ACID
     Indication: Enteral nutrition
     Dates: start: 20210928, end: 20211001
  46. PETHIDINE HYDROCHLORIDE INJECTION 35MG. [Concomitant]
     Indication: Endoscopy upper gastrointestinal tract
     Dates: start: 20210928, end: 20210928
  47. FLUOXETINE HYDROCHLORIDE\OLANZAPINE [Concomitant]
     Active Substance: FLUOXETINE HYDROCHLORIDE\OLANZAPINE
     Indication: Prophylaxis of nausea and vomiting
     Dates: start: 20211006, end: 20211009
  48. SODIUM GUALENATE MONOHYDRATE [Concomitant]
     Active Substance: SODIUM GUALENATE MONOHYDRATE
     Dates: start: 20211006, end: 20211013
  49. ELIQUIS [Concomitant]
     Active Substance: APIXABAN
     Indication: Atrial fibrillation
     Dates: start: 20211008, end: 20211010
  50. 4-(4-HYDROXYPHENYL)BUTAN-2-ONE/MAGNESIUM OXIDE/CROCUS SATIVUS [Concomitant]
     Indication: Constipation
     Dates: start: 20211010, end: 20211012
  51. DISOPYRAMIDE [Concomitant]
     Active Substance: DISOPYRAMIDE
     Indication: Atrial fibrillation
     Dates: start: 20211011, end: 20211011
  52. LACTEC INJECTION [Concomitant]
     Indication: Blood creatinine increased
     Dates: start: 20211013, end: 20211013
  53. LACTEC INJECTION [Concomitant]
     Indication: Oesophageal fistula
     Dates: start: 20211013, end: 20211013
  54. LACTEC INJECTION [Concomitant]
     Indication: Blood creatinine increased
     Dates: start: 20211015, end: 20211015
  55. LACTEC INJECTION [Concomitant]
     Indication: Oesophageal fistula
     Dates: start: 20211015, end: 20211015
  56. LACTEC INJECTION [Concomitant]
     Indication: Blood creatinine increased
     Dates: start: 20211121, end: 20211124
  57. LACTEC INJECTION [Concomitant]
     Indication: Oesophageal fistula
     Dates: start: 20211121, end: 20211124
  58. NEW LECICARBON SUPP [Concomitant]
     Indication: Constipation
     Dates: start: 20211009, end: 20211012
  59. SENNOSIDES [Concomitant]
     Active Substance: SENNOSIDES
     Indication: Constipation
     Dates: start: 20211011, end: 20211011
  60. GLYCERIN ENEMA [Concomitant]
     Indication: Constipation
     Dates: start: 20211010, end: 20211010
  61. GLYCERIN ENEMA [Concomitant]
     Indication: Constipation
     Dates: start: 20220114, end: 20220114
  62. TAZOPIPE FOR INTRAVENOUS INJECTION [Concomitant]
     Indication: Oesophageal fistula
     Dates: start: 20211121, end: 20211207
  63. TAZOPIPE FOR INTRAVENOUS INJECTION [Concomitant]
     Indication: Febrile neutropenia
     Dates: start: 20211121, end: 20211207
  64. TAZOPIPE FOR INTRAVENOUS INJECTION [Concomitant]
     Indication: Prophylaxis
     Dates: start: 20211121, end: 20211207
  65. TAZOPIPE FOR INTRAVENOUS INJECTION [Concomitant]
     Indication: Oesophageal fistula
     Dates: start: 20220203, end: 20220210
  66. TAZOPIPE FOR INTRAVENOUS INJECTION [Concomitant]
     Indication: Febrile neutropenia
     Dates: start: 20220203, end: 20220210
  67. TAZOPIPE FOR INTRAVENOUS INJECTION [Concomitant]
     Indication: Prophylaxis
     Dates: start: 20220203, end: 20220210
  68. TAZOPIPE FOR INTRAVENOUS INJECTION [Concomitant]
     Indication: Oesophageal fistula
     Dates: start: 20220211, end: 20220214
  69. TAZOPIPE FOR INTRAVENOUS INJECTION [Concomitant]
     Indication: Febrile neutropenia
     Dates: start: 20220211, end: 20220214
  70. TAZOPIPE FOR INTRAVENOUS INJECTION [Concomitant]
     Indication: Prophylaxis
     Dates: start: 20220211, end: 20220214
  71. ACELIO BAG FOR INTRAVENOUS INJECTION [Concomitant]
     Indication: Oesophageal fistula
     Dates: start: 20211121, end: 20211129
  72. CELECOXIB/TRAMADOL HYDROCHLORIDE [Concomitant]
     Indication: Oesophageal fistula
     Dates: start: 20211121, end: 20211213
  73. OMEPRAL INJECTION20 [Concomitant]
     Indication: Prophylaxis against gastrointestinal ulcer
     Dates: start: 20211130, end: 20211207
  74. FILGRASTIM [Concomitant]
     Active Substance: FILGRASTIM
     Indication: Febrile neutropenia
     Dates: start: 20220203, end: 20220209
  75. ABIRATERONE/PREDNISOLONE [Concomitant]
     Indication: Pneumonitis
     Dates: start: 20220208, end: 20220214
  76. ABIRATERONE/PREDNISOLONE [Concomitant]
     Indication: Pneumonitis
     Dates: start: 20220215, end: 20220221
  77. ABIRATERONE/PREDNISOLONE [Concomitant]
     Indication: Pneumonitis
     Dates: start: 20220215, end: 20220221
  78. ABIRATERONE/PREDNISOLONE [Concomitant]
     Indication: Pneumonitis
     Dates: start: 20220222, end: 20220228
  79. ABIRATERONE/PREDNISOLONE [Concomitant]
     Indication: Pneumonitis
     Dates: start: 20220301, end: 20220307
  80. ABIRATERONE/PREDNISOLONE [Concomitant]
     Indication: Pneumonitis
     Dates: start: 20220301, end: 20220307
  81. ABIRATERONE/PREDNISOLONE [Concomitant]
     Indication: Pneumonitis
     Dates: start: 20220308, end: 20220318
  82. ABIRATERONE/PREDNISOLONE [Concomitant]
     Indication: Pneumonitis
     Dates: start: 20220319, end: 20220401
  83. ABIRATERONE/PREDNISOLONE [Concomitant]
     Indication: Pneumonitis
     Dates: start: 20220402, end: 20220415
  84. ABIRATERONE/PREDNISOLONE [Concomitant]
     Indication: Pneumonitis
     Dates: start: 20220416, end: 20220427
  85. BAKTAR COMBINATION GRANULES [Concomitant]
     Indication: Pneumonitis
     Dates: start: 20220208, end: 20220427
  86. ONEALFA TABLETS [Concomitant]
     Indication: Osteoporosis prophylaxis
     Dates: start: 20220208, end: 20220427
  87. DEXAMETHASONE SODIUM PHOSPHATE [Concomitant]
     Active Substance: DEXAMETHASONE SODIUM PHOSPHATE
     Indication: Premedication
     Dates: start: 20220124
  88. POLARAMINE [Concomitant]
     Active Substance: DEXCHLORPHENIRAMINE MALEATE
     Indication: Premedication
     Dates: start: 20220124
  89. FAMOTIDINE/CALCIUM/MAGNESIUM [Concomitant]
     Indication: Premedication
     Dates: start: 20220124

REACTIONS (3)
  - Oesophageal fistula [Recovered/Resolved]
  - Neutrophil count decreased [Recovered/Resolved]
  - Platelet count decreased [Recovered/Resolved]

NARRATIVE: CASE EVENT DATE: 20211118
